FAERS Safety Report 8461618-2 (Version None)
Quarter: 2012Q2

REPORT INFORMATION
  Report Type: 
  Country: None (occurrence: None)
  Receive Date: 20120625
  Receipt Date: 20120615
  Transmission Date: 20120825
  Serious: Yes (Hospitalization)
  Sender: FDA-Public Use
  Company Number: PHHY2012BR052624

PATIENT
  Sex: Male
  Weight: 75 kg

DRUGS (6)
  1. FORMOTEROL FUMARATE [Suspect]
     Indication: RESPIRATORY DISORDER
     Dosage: 1 DF, Q12H
     Dates: start: 20100101
  2. FORMOTEROL FUMARATE [Suspect]
     Dosage: 1 DF, Q8H
  3. ALENIA [Concomitant]
     Indication: RESPIRATORY DISORDER
     Dosage: 1 DF, TID
  4. BEROTEC [Concomitant]
     Indication: RESPIRATORY DISORDER
     Dosage: 4 DRP, PRN
  5. THEOPHYLLINE [Concomitant]
     Indication: RESPIRATORY DISORDER
     Dosage: 1 DF, BID
     Route: 048
  6. DOXAZOSIN MESYLATE [Concomitant]
     Indication: PROSTATIC DISORDER
     Dosage: 1 DF, QD
     Route: 048

REACTIONS (6)
  - HAEMORRHAGE [None]
  - DYSURIA [None]
  - DYSPNOEA [None]
  - OEDEMA PERIPHERAL [None]
  - PROSTATIC DISORDER [None]
  - WEIGHT DECREASED [None]
